FAERS Safety Report 19624817 (Version 2)
Quarter: 2021Q3

REPORT INFORMATION
  Report Type: Spontaneous
  Country: US (occurrence: US)
  Receive Date: 20210728
  Receipt Date: 20210804
  Transmission Date: 20211014
  Serious: Yes (Hospitalization)
  Sender: FDA-Public Use
  Company Number: US-PFIZER INC-2021684223

PATIENT
  Age: 68 Year
  Sex: Male

DRUGS (7)
  1. INLYTA [Suspect]
     Active Substance: AXITINIB
     Dosage: 1 MG
     Dates: start: 20210720
  2. INLYTA [Suspect]
     Active Substance: AXITINIB
     Dosage: 5 MG
     Dates: start: 20210419
  3. INLYTA [Suspect]
     Active Substance: AXITINIB
     Dosage: 1 MG
     Dates: start: 20210419
  4. KEYTRUDA [Concomitant]
     Active Substance: PEMBROLIZUMAB
     Dosage: UNK
  5. INLYTA [Suspect]
     Active Substance: AXITINIB
     Dosage: 1 MG
     Dates: start: 20210315
  6. INLYTA [Suspect]
     Active Substance: AXITINIB
     Dosage: 1 MG, 2X/DAY (1MG, 2 TABS BID)
     Dates: start: 20210620
  7. INLYTA [Suspect]
     Active Substance: AXITINIB
     Dosage: 5 MG, 2X/DAY (5MG BID)
     Dates: start: 20210228

REACTIONS (9)
  - Diarrhoea [Unknown]
  - Restlessness [Unknown]
  - Weight decreased [Unknown]
  - Insomnia [Unknown]
  - Mucous stools [Unknown]
  - Dyspnoea [Unknown]
  - Blood glucose abnormal [Unknown]
  - Constipation [Unknown]
  - Gait disturbance [Unknown]
